FAERS Safety Report 12543897 (Version 1)
Quarter: 2016Q3

REPORT INFORMATION
  Report Type: Spontaneous
  Country: US (occurrence: None)
  Receive Date: 20160708
  Receipt Date: 20160708
  Transmission Date: 20161109
  Serious: Yes (Other)
  Sender: FDA-Public Use
  Company Number: None

PATIENT
  Age: 85 Year
  Sex: Female

DRUGS (5)
  1. PROLIA [Suspect]
     Active Substance: DENOSUMAB
     Indication: OSTEOPOROSIS
     Dosage: 60 MG EVERY 6 MONTHS SUBCUTANEOUSLY
     Route: 058
     Dates: start: 20141015
  2. XALATAN [Concomitant]
     Active Substance: LATANOPROST
  3. COQ10 [Concomitant]
     Active Substance: UBIDECARENONE
  4. DIOVAN [Concomitant]
     Active Substance: VALSARTAN
  5. METOPROLOL. [Concomitant]
     Active Substance: METOPROLOL

REACTIONS (2)
  - Hot flush [None]
  - Chronic leukaemia [None]
